FAERS Safety Report 5916657-X (Version None)
Quarter: 2008Q4

REPORT INFORMATION
  Report Type: 
  Country: None (occurrence: None)
  Receive Date: 20081013
  Receipt Date: 20080922
  Transmission Date: 20090506
  Serious: No
  Sender: FDA-Public Use
  Company Number: US-JNJFOC-20080905532

PATIENT
  Age: 28 Year
  Sex: Male

DRUGS (1)
  1. INVEGA [Suspect]
     Indication: SCHIZOPHRENIA

REACTIONS (3)
  - ANGER [None]
  - MEMORY IMPAIRMENT [None]
  - WEIGHT INCREASED [None]
